FAERS Safety Report 21402624 (Version 14)
Quarter: 2023Q2

REPORT INFORMATION
  Report Type: Spontaneous
  Country: US (occurrence: US)
  Receive Date: 20221003
  Receipt Date: 20230509
  Transmission Date: 20230722
  Serious: Yes (Other)
  Sender: FDA-Public Use
  Company Number: US-GLAXOSMITHKLINE-US2022AMR137608

PATIENT

DRUGS (14)
  1. FLUARIX QUADRIVALENT 2022/2023 [Suspect]
     Active Substance: INFLUENZA A VIRUS A/DARWIN/6/2021 IVR-227 (H3N2) ANTIGEN (FORMALDEHYDE INACTIVATED)\INFLUENZA A VIRU
     Indication: Prophylaxis
     Dates: start: 20220915
  2. ZEJULA [Suspect]
     Active Substance: NIRAPARIB
     Indication: Ovarian cancer
     Dosage: 100 MG, BID
     Route: 048
     Dates: start: 20220919
  3. ZEJULA [Suspect]
     Active Substance: NIRAPARIB
     Dosage: 200 MG, QD,  DAILY DAYS 1-21 OF CHEMOTHERAPY CYCLE
     Route: 048
  4. ZEJULA [Suspect]
     Active Substance: NIRAPARIB
     Dosage: 100 MG, QD
     Dates: start: 20221008
  5. ZEJULA [Suspect]
     Active Substance: NIRAPARIB
     Dosage: 100 MG, QD
     Route: 048
  6. ZEJULA [Suspect]
     Active Substance: NIRAPARIB
     Dosage: 100 MG, QD
     Route: 048
  7. PFIZER-BIONTECH COVID-19 VACCINE [Suspect]
     Active Substance: TOZINAMERAN
     Indication: Prophylaxis
     Dosage: UNK
     Dates: start: 20220915
  8. DEXAMETHASONE [Suspect]
     Active Substance: DEXAMETHASONE
     Indication: Product used for unknown indication
     Dosage: UNK
  9. LYNPARZA [Concomitant]
     Active Substance: OLAPARIB
     Indication: Product used for unknown indication
     Dosage: UNK
  10. BIOTIN [Concomitant]
     Active Substance: BIOTIN
     Indication: Product used for unknown indication
     Dosage: 1000 ?G
  11. VITAMIN B12 [Concomitant]
     Active Substance: CYANOCOBALAMIN
     Indication: Product used for unknown indication
     Dosage: UNK
  12. PYRIDOXINE [Concomitant]
     Active Substance: PYRIDOXINE
     Indication: Product used for unknown indication
     Dosage: 100 MG
  13. THIAMINE HYDROCHLORIDE [Concomitant]
     Active Substance: THIAMINE HYDROCHLORIDE
     Indication: Product used for unknown indication
     Dosage: 100 MG
  14. CARVEDILOL [Concomitant]
     Active Substance: CARVEDILOL
     Indication: Product used for unknown indication
     Dosage: UNK

REACTIONS (45)
  - Neuropathy peripheral [Unknown]
  - Cardiac flutter [Not Recovered/Not Resolved]
  - Dizziness [Recovering/Resolving]
  - Nausea [Not Recovered/Not Resolved]
  - Tremor [Unknown]
  - Hypoaesthesia [Unknown]
  - Dehydration [Unknown]
  - Aphasia [Unknown]
  - Productive cough [Unknown]
  - Insomnia [Not Recovered/Not Resolved]
  - Peripheral swelling [Unknown]
  - Nasal congestion [Unknown]
  - Musculoskeletal stiffness [Recovering/Resolving]
  - Back pain [Not Recovered/Not Resolved]
  - Malaise [Not Recovered/Not Resolved]
  - Myalgia [Not Recovered/Not Resolved]
  - Cough [Unknown]
  - Asthenia [Not Recovered/Not Resolved]
  - Mobility decreased [Unknown]
  - Arthralgia [Unknown]
  - Fatigue [Not Recovered/Not Resolved]
  - Vomiting [Unknown]
  - Vision blurred [Not Recovered/Not Resolved]
  - Eye swelling [Unknown]
  - Sleep disorder [Not Recovered/Not Resolved]
  - Heart rate irregular [Unknown]
  - Heart rate increased [Not Recovered/Not Resolved]
  - Adverse drug reaction [Unknown]
  - Pain in extremity [Unknown]
  - Low density lipoprotein increased [Unknown]
  - Palpitations [Unknown]
  - Full blood count abnormal [Unknown]
  - Sensory disturbance [Unknown]
  - Weight decreased [Not Recovered/Not Resolved]
  - Blood pressure increased [Unknown]
  - Balance disorder [Not Recovered/Not Resolved]
  - Decreased appetite [Not Recovered/Not Resolved]
  - Anxiety [Unknown]
  - Abdominal discomfort [Unknown]
  - Constipation [Unknown]
  - Red blood cell count decreased [Unknown]
  - White blood cell count decreased [Unknown]
  - Depression [Unknown]
  - Arthralgia [Unknown]
  - Muscular weakness [Unknown]

NARRATIVE: CASE EVENT DATE: 20220901
